FAERS Safety Report 7330260-9 (Version None)
Quarter: 2011Q1

REPORT INFORMATION
  Report Type: 
  Country: None (occurrence: None)
  Receive Date: 20110304
  Receipt Date: 20110223
  Transmission Date: 20110831
  Serious: Yes (Hospitalization, Other)
  Sender: FDA-Public Use
  Company Number: DK-AMGEN-DNKSP2011008236

PATIENT
  Age: 29 Year
  Sex: Female

DRUGS (1)
  1. ENBREL [Suspect]
     Indication: PRODUCT USED FOR UNKNOWN INDICATION
     Dosage: UNKNOWN
     Dates: start: 20101229, end: 20110128

REACTIONS (6)
  - LYMPHOCYTOSIS [None]
  - LHERMITTE'S SIGN [None]
  - OFF LABEL USE [None]
  - GAIT DISTURBANCE [None]
  - ATAXIA [None]
  - DEMYELINATION [None]
